FAERS Safety Report 7241170-X (Version None)
Quarter: 2011Q1

REPORT INFORMATION
  Report Type: 
  Country: None (occurrence: None)
  Receive Date: 20110124
  Receipt Date: 20110118
  Transmission Date: 20110831
  Serious: Yes (Other)
  Sender: FDA-Public Use
  Company Number: US-AMGEN-USASP2011002443

PATIENT

DRUGS (2)
  1. NPLATE [Suspect]
     Indication: THROMBOCYTOPENIA
     Dosage: UNK
     Dates: start: 20090718
  2. CORTICOSTEROIDS [Concomitant]
     Dosage: UNK

REACTIONS (1)
  - BONE MARROW RETICULIN FIBROSIS [None]
